FAERS Safety Report 7169651-8 (Version None)
Quarter: 2010Q4

REPORT INFORMATION
  Report Type: 
  Country: None (occurrence: None)
  Receive Date: 20101217
  Receipt Date: 20101208
  Transmission Date: 20110411
  Serious: Yes (Other)
  Sender: FDA-Public Use
  Company Number: US-JNJFOC-20101003517

PATIENT
  Sex: Female
  Weight: 69.4 kg

DRUGS (20)
  1. REMICADE [Suspect]
     Indication: RHEUMATOID ARTHRITIS
     Route: 042
  2. METHOTREXATE [Concomitant]
     Dosage: 2.5
  3. PREDNISONE [Concomitant]
  4. FOLIC ACID [Concomitant]
  5. TRAMADOL [Concomitant]
     Indication: PAIN
  6. HYDROCODONE [Concomitant]
     Indication: PAIN
  7. ZINC [Concomitant]
     Dosage: 22
  8. VITAMIN D [Concomitant]
     Dosage: 50, 000 UNITS
  9. VITAMIN TAB [Concomitant]
  10. VICODIN [Concomitant]
     Indication: RHEUMATOID ARTHRITIS
  11. RECLAST [Concomitant]
     Indication: OSTEOPOROSIS
  12. CALCIUM [Concomitant]
     Indication: OSTEOPOROSIS
  13. PRILOSEC [Concomitant]
  14. MELOXICAM [Concomitant]
     Dosage: 15 ONE-HALF
  15. MULTI-VITAMINS [Concomitant]
  16. ASCORBIC ACID [Concomitant]
  17. VITAMIN B [Concomitant]
     Dosage: 1000
  18. IRON [Concomitant]
  19. TRAMADOL [Concomitant]
     Dosage: 50
  20. FISH OIL [Concomitant]
     Dosage: 1000

REACTIONS (4)
  - DIARRHOEA [None]
  - HEPATIC ENZYME INCREASED [None]
  - MUSCULOSKELETAL DISCOMFORT [None]
  - NASOPHARYNGITIS [None]
